FAERS Safety Report 6433633-1 (Version None)
Quarter: 2009Q4

REPORT INFORMATION
  Report Type: 
  Country: None (occurrence: None)
  Receive Date: 20091110
  Receipt Date: 20091106
  Transmission Date: 20100525
  Serious: Yes (Death, Other)
  Sender: FDA-Public Use
  Company Number: PHEH2009US07668

PATIENT
  Sex: Female

DRUGS (7)
  1. EXJADE [Suspect]
     Dosage: 500 MG, UNK
     Dates: start: 20060601
  2. ATENOLOL [Concomitant]
  3. ZEMPLAR [Concomitant]
  4. DOSTINEX [Concomitant]
     Indication: ANTIPROLACTIN THERAPY
  5. PRILOSEC [Concomitant]
  6. NEPHROCAPS [Concomitant]
  7. ZOLOFT [Concomitant]

REACTIONS (8)
  - CARDIAC FAILURE [None]
  - DEATH [None]
  - DRUG INTOLERANCE [None]
  - ELECTROLYTE IMBALANCE [None]
  - NAUSEA [None]
  - PERITONEAL DIALYSIS [None]
  - RENAL FAILURE [None]
  - SEPSIS [None]
